FAERS Safety Report 8575395-8 (Version None)
Quarter: 2012Q3

REPORT INFORMATION
  Report Type: 
  Country: None (occurrence: None)
  Receive Date: 20120807
  Receipt Date: 20120803
  Transmission Date: 20120928
  Serious: No
  Sender: FDA-Public Use
  Company Number: US-PFIZER INC-2012189246

PATIENT
  Age: 81 Year
  Sex: Female

DRUGS (1)
  1. SUTENT [Suspect]
     Indication: CARCINOID TUMOUR OF THE SMALL BOWEL
     Dosage: 12.5 MG, 25 MG DAILY 4 WKS ON, 2 OFF
     Dates: start: 20120702

REACTIONS (2)
  - CARCINOID TUMOUR OF THE SMALL BOWEL [None]
  - DISEASE PROGRESSION [None]
